FAERS Safety Report 8407687-7 (Version None)
Quarter: 2012Q2

REPORT INFORMATION
  Report Type: 
  Country: None (occurrence: None)
  Receive Date: 20120604
  Receipt Date: 20120530
  Transmission Date: 20120825
  Serious: Yes (Other)
  Sender: FDA-Public Use
  Company Number: US-AMGEN-USASP2012027673

PATIENT
  Age: 64 Year
  Sex: Female

DRUGS (11)
  1. IBUPROFEN [Concomitant]
     Indication: PAIN
     Dosage: 600 MG, Q6H
  2. VITAMIN D [Concomitant]
     Dosage: 40000 IU, QD
  3. LOVASTATIN [Concomitant]
     Dosage: 40 MG, QD
  4. LEVOTHYROXINE SODIUM [Concomitant]
     Dosage: 125 MUG, QD
     Route: 048
  5. ATIVAN [Concomitant]
     Dosage: 0.5 MG, Q6H
  6. LOSARTAN POTASSIUM [Concomitant]
     Dosage: 50 MG, BID
  7. TYLENOL (CAPLET) [Concomitant]
     Indication: PAIN
     Dosage: 500 MG, Q6H
  8. PROLIA [Suspect]
     Indication: PRODUCT USED FOR UNKNOWN INDICATION
     Dosage: 120 MG, ONE TIME DOSE
     Route: 058
     Dates: start: 20120424, end: 20120424
  9. FENTANYL [Concomitant]
     Dosage: 100 MUG, 2 TIMES/WK
     Route: 062
  10. HYDROCODONE BITARTRATE + ACETAMINOPHEN [Concomitant]
     Dosage: UNK UNK, Q6H
  11. ZOMETA [Concomitant]
     Indication: METASTASES TO BONE
     Dosage: UNK

REACTIONS (6)
  - DRY MOUTH [None]
  - KLEBSIELLA INFECTION [None]
  - PLATELET COUNT DECREASED [None]
  - ANAEMIA [None]
  - CHEST PAIN [None]
  - STREPTOCOCCAL URINARY TRACT INFECTION [None]
